FAERS Safety Report 18435698 (Version 1)
Quarter: 2020Q4

REPORT INFORMATION
  Report Type: Spontaneous
  Country: US (occurrence: US)
  Receive Date: 20201028
  Receipt Date: 20201028
  Transmission Date: 20210114
  Serious: No
  Sender: FDA-Public Use
  Company Number: US-ASTRAZENECA-2020SF38147

PATIENT
  Sex: Female
  Weight: 62.6 kg

DRUGS (1)
  1. PULMICORT FLEXHALER [Suspect]
     Active Substance: BUDESONIDE
     Indication: ASTHMA
     Route: 055

REACTIONS (4)
  - Sinusitis [Unknown]
  - Dyspnoea [Unknown]
  - Intentional device misuse [Unknown]
  - Drug delivery system issue [Unknown]
